FAERS Safety Report 18754038 (Version 2)
Quarter: 2021Q1

REPORT INFORMATION
  Report Type: Spontaneous
  Country: FR (occurrence: FR)
  Receive Date: 20210119
  Receipt Date: 20210211
  Transmission Date: 20210419
  Serious: Yes (Other)
  Sender: FDA-Public Use
  Company Number: FR-JNJFOC-20210126242

PATIENT
  Age: 58 Year
  Sex: Female
  Weight: 93.7 kg

DRUGS (15)
  1. PARACETAMOL [Suspect]
     Active Substance: ACETAMINOPHEN
     Indication: PAIN
     Dosage: 1 GRAM
     Route: 048
  2. ZIEXTENZO [Concomitant]
     Active Substance: PEGFILGRASTIM-BMEZ
     Dosage: 6 MILLIGRAM
     Route: 042
  3. OGIVRI [TRASTUZUMAB] [Concomitant]
     Dosage: 8 MILLIGRAM/KILOGRAM, ONCE
     Route: 042
     Dates: start: 20201116, end: 20201218
  4. FUNGIZONE [Concomitant]
     Active Substance: AMPHOTERICIN B
     Dosage: UNK
     Route: 002
  5. VOGALENE [Concomitant]
     Active Substance: METOPIMAZINE
     Dosage: 7.5 MILLIGRAM
     Route: 048
  6. DOCETAXEL. [Suspect]
     Active Substance: DOCETAXEL
     Indication: HER2 POSITIVE BREAST CANCER
     Dosage: 150 MILLIGRAM
     Route: 042
     Dates: start: 20201116, end: 20201116
  7. CARBOPLATINE [Concomitant]
     Active Substance: CARBOPLATIN
     Dosage: 813 MILLIGRAM
     Route: 042
     Dates: start: 20201116, end: 20201218
  8. DIOSMECTITE MYLAN [Concomitant]
     Active Substance: MONTMORILLONITE
     Dosage: 9 GRAM
     Route: 048
  9. NETUPITANT;PALONOSETRON HYDROCHLORIDE [Concomitant]
     Dosage: 1 DOSAGE FORM
     Route: 048
  10. PREDNISOLONE. [Concomitant]
     Active Substance: PREDNISOLONE
     Dosage: 20 MILLIGRAM
     Route: 048
  11. RACECADOTRIL [Concomitant]
     Active Substance: RACECADOTRIL
     Dosage: 300 MILLIGRAM
     Route: 048
  12. TRAMADOL/APAP [Suspect]
     Active Substance: ACETAMINOPHEN\TRAMADOL
     Indication: PAIN
     Dosage: 1 DOSAGE FORM
     Route: 048
  13. LOPERAMIDE HYDROCHLORIDE. [Concomitant]
     Active Substance: LOPERAMIDE HYDROCHLORIDE
     Dosage: 2 MILLIGRAM
     Route: 048
  14. COVERAM [Concomitant]
     Active Substance: AMLODIPINE\PERINDOPRIL
     Dosage: 1 DOSAGE FORM, 1/DAY
     Route: 048
  15. DYNEXAN [LIDOCAINE HYDROCHLORIDE] [Concomitant]
     Dosage: UNK
     Route: 002

REACTIONS (1)
  - Hepatitis [Recovering/Resolving]

NARRATIVE: CASE EVENT DATE: 20201205
